FAERS Safety Report 9686083 (Version 1)
Quarter: 2013Q4

REPORT INFORMATION
  Report Type: Spontaneous
  Country: CA (occurrence: None)
  Receive Date: 20131108
  Receipt Date: 20131108
  Transmission Date: 20140711
  Serious: Yes (Other)
  Sender: FDA-Public Use
  Company Number: DEP_01260_2013

PATIENT
  Age: 59 Year
  Sex: Female

DRUGS (7)
  1. FENTANYL [Suspect]
     Indication: PAIN
     Dosage: 75 MCG/H TRANSDERMAL
     Route: 062
  2. HYDROMORPHONE [Concomitant]
  3. DEXAMETHASONE [Concomitant]
  4. PROCHLORPERAZINE [Concomitant]
  5. METOCLOPRAMIDE [Concomitant]
  6. NABILONE [Concomitant]
  7. ONDANSETRON [Concomitant]

REACTIONS (6)
  - Bradycardia [None]
  - Headache [None]
  - Blood pressure systolic increased [None]
  - Body temperature decreased [None]
  - Somnolence [None]
  - Chest pain [None]
